FAERS Safety Report 17424927 (Version 3)
Quarter: 2020Q1

REPORT INFORMATION
  Report Type: Report from Study
  Country: None (occurrence: US)
  Receive Date: 20200217
  Receipt Date: 20200312
  Transmission Date: 20200409
  Serious: Yes (Other)
  Sender: FDA-Public Use
  Company Number: US-ABBVIE-19K-163-3145991-00

PATIENT
  Sex: Female

DRUGS (8)
  1. IMBRUVICA [Suspect]
     Active Substance: IBRUTINIB
     Route: 048
  2. IMBRUVICA [Suspect]
     Active Substance: IBRUTINIB
     Indication: LYMPHOCYTIC LEUKAEMIA
     Dosage: 420 MG, QD
     Route: 048
     Dates: start: 20190513
  3. IMBRUVICA [Suspect]
     Active Substance: IBRUTINIB
     Route: 048
  4. BIOTIN [Concomitant]
     Active Substance: BIOTIN
     Indication: PRODUCT USED FOR UNKNOWN INDICATION
  5. IMBRUVICA [Suspect]
     Active Substance: IBRUTINIB
     Route: 048
  6. IMBRUVICA [Suspect]
     Active Substance: IBRUTINIB
     Route: 048
     Dates: start: 20190515
  7. IMBRUVICA [Suspect]
     Active Substance: IBRUTINIB
     Route: 048
  8. IMBRUVICA [Suspect]
     Active Substance: IBRUTINIB
     Dosage: 420 MG, QD
     Route: 048
     Dates: start: 20190515

REACTIONS (18)
  - Cataract [Not Recovered/Not Resolved]
  - Joint swelling [Unknown]
  - Heart rate irregular [Unknown]
  - Rash macular [Unknown]
  - Bone pain [Unknown]
  - Contusion [Unknown]
  - Energy increased [Unknown]
  - Arthralgia [Unknown]
  - Muscle spasms [Unknown]
  - Dizziness [Unknown]
  - Nausea [Recovering/Resolving]
  - Localised infection [Unknown]
  - Weight increased [Unknown]
  - Onychomadesis [Not Recovered/Not Resolved]
  - Abdominal pain [Unknown]
  - Pruritus [Not Recovered/Not Resolved]
  - Ingrowing nail [Unknown]
  - Cardiac flutter [Not Recovered/Not Resolved]
